FAERS Safety Report 9281852 (Version 3)
Quarter: 2013Q3

REPORT INFORMATION
  Report Type: Spontaneous
  Country: FR (occurrence: FR)
  Receive Date: 20130510
  Receipt Date: 20130705
  Transmission Date: 20140515
  Serious: Yes (Hospitalization)
  Sender: FDA-Public Use
  Company Number: FR-ROCHE-1221864

PATIENT
  Age: 74 Year
  Sex: Male

DRUGS (7)
  1. LUCENTIS [Suspect]
     Indication: MACULAR OEDEMA
     Route: 050
     Dates: start: 201209
  2. LUCENTIS [Suspect]
     Indication: RETINAL VEIN OCCLUSION
     Route: 050
     Dates: start: 20130118, end: 201301
  3. LUCENTIS [Suspect]
     Route: 050
     Dates: start: 20130222
  4. LUCENTIS [Suspect]
     Route: 050
     Dates: start: 20130329
  5. ACETYLSALICYLATE LYSINE [Concomitant]
  6. PERINDOPRIL [Concomitant]
     Route: 065
     Dates: start: 201208
  7. KARDEGIC [Concomitant]
     Route: 065
     Dates: start: 2012

REACTIONS (2)
  - Orchitis [Recovered/Resolved]
  - Anaemia [Unknown]
